FAERS Safety Report 17887053 (Version 2)
Quarter: 2020Q2

REPORT INFORMATION
  Report Type: Report from Study
  Country: US (occurrence: US)
  Receive Date: 20200612
  Receipt Date: 20200616
  Transmission Date: 20200714
  Serious: No
  Sender: FDA-Public Use
  Company Number: US-ASTRAZENECA-2020SE74113

PATIENT
  Age: 5817 Day
  Sex: Female
  Weight: 50.8 kg

DRUGS (1)
  1. KOSELUGO [Suspect]
     Active Substance: SELUMETINIB
     Indication: NEUROFIBROMA
     Dosage: TAKES 25 MG IN MORNING AND 10 MG IN THE EVENING
     Route: 048
     Dates: start: 20200603

REACTIONS (5)
  - Angina pectoris [Unknown]
  - Rash papular [Unknown]
  - Nodular rash [Unknown]
  - Oral disorder [Unknown]
  - Dyspepsia [Unknown]

NARRATIVE: CASE EVENT DATE: 20200604
